FAERS Safety Report 13839341 (Version 1)
Quarter: 2017Q3

REPORT INFORMATION
  Report Type: Spontaneous
  Country: US (occurrence: US)
  Receive Date: 20170805
  Receipt Date: 20170805
  Transmission Date: 20171127
  Serious: Yes (Life-Threatening)
  Sender: FDA-Public Use
  Company Number: None

PATIENT
  Age: 86 Year
  Sex: Male
  Weight: 68.55 kg

DRUGS (1)
  1. NOVOLOG [Suspect]
     Active Substance: INSULIN ASPART
     Indication: BLOOD GLUCOSE ABNORMAL
     Dosage: 10ML PER 100U VARIABLE 3-4 TIMES/DAY INJECTION
     Dates: start: 20170705, end: 20170718

REACTIONS (1)
  - Seizure [None]

NARRATIVE: CASE EVENT DATE: 20170718
